FAERS Safety Report 8590087-7 (Version None)
Quarter: 2012Q3

REPORT INFORMATION
  Report Type: 
  Country: None (occurrence: None)
  Receive Date: 20120813
  Receipt Date: 19900409
  Transmission Date: 20120928
  Serious: Yes (Other)
  Sender: FDA-Public Use
  Company Number: US-ROCHE-1099878

PATIENT
  Age: 46 Year
  Sex: Male

DRUGS (6)
  1. NITROGLYCERIN [Concomitant]
     Route: 060
  2. PROCARDIA [Concomitant]
  3. ACTIVASE [Suspect]
     Indication: ACUTE MYOCARDIAL INFARCTION
     Route: 040
  4. NITROGLYCERIN [Concomitant]
     Route: 041
  5. ASPIRIN [Concomitant]
  6. HEPARIN [Concomitant]
     Route: 040

REACTIONS (4)
  - TACHYCARDIA [None]
  - VENTRICULAR EXTRASYSTOLES [None]
  - CONVULSION [None]
  - VENTRICULAR FIBRILLATION [None]
